FAERS Safety Report 9242891 (Version 6)
Quarter: 2013Q3

REPORT INFORMATION
  Report Type: Spontaneous
  Country: DK (occurrence: JP)
  Receive Date: 20130419
  Receipt Date: 20130814
  Transmission Date: 20140515
  Serious: Yes (Hospitalization)
  Sender: FDA-Public Use
  Company Number: JP-FRI-1000044443

PATIENT
  Age: 81 Year
  Sex: Female
  Weight: 43 kg

DRUGS (10)
  1. LEXAPRO [Suspect]
     Indication: DEPRESSIVE SYMPTOM
     Dosage: 10 MG
     Route: 048
     Dates: start: 20130201, end: 20130317
  2. RASILEZ [Concomitant]
     Indication: HYPERTENSION
     Dosage: 150 MG
     Route: 048
     Dates: end: 20130317
  3. NORVASC [Concomitant]
     Indication: HYPERTENSION
     Dosage: 5 MG
     Route: 048
     Dates: start: 20120620, end: 20130317
  4. BUP-4 [Concomitant]
     Indication: URINARY INCONTINENCE
     Dosage: 20 MG
     Route: 048
     Dates: start: 20121012, end: 20130213
  5. PROTECADIN [Concomitant]
     Indication: DECREASED APPETITE
     Dosage: 10 MG
     Route: 048
     Dates: start: 20121026, end: 20130317
  6. REMINYL OD [Concomitant]
     Indication: DEMENTIA
     Dosage: 16 MG
     Route: 048
     Dates: start: 20120411, end: 20130317
  7. NAUZELIN [Concomitant]
     Indication: DECREASED APPETITE
     Dosage: 20 MG
     Route: 048
     Dates: start: 20130124, end: 20130317
  8. AMITIZA [Concomitant]
     Indication: CONSTIPATION
     Dosage: 24 MG
     Route: 048
     Dates: start: 20130201, end: 20130317
  9. AMLODIPINE [Concomitant]
     Dosage: 5 MG
     Route: 048
     Dates: end: 20130317
  10. MOHRUS [Concomitant]
     Route: 062
     Dates: end: 20130317

REACTIONS (2)
  - Convulsion [Recovered/Resolved]
  - Ventricular tachycardia [Recovered/Resolved]
